FAERS Safety Report 16001245 (Version 1)
Quarter: 2019Q1

REPORT INFORMATION
  Report Type: Spontaneous
  Country: CY (occurrence: CY)
  Receive Date: 20190225
  Receipt Date: 20190225
  Transmission Date: 20190418
  Serious: Yes (Death, Other)
  Sender: FDA-Public Use
  Company Number: CY-PFIZER INC-2019081256

PATIENT
  Age: 70 Year
  Sex: Male

DRUGS (2)
  1. PACLITAXEL. [Suspect]
     Active Substance: PACLITAXEL
     Indication: GASTROINTESTINAL CANCER METASTATIC
     Dosage: UNK, UNKNOWN
     Route: 065
  2. CYRAMZA [Suspect]
     Active Substance: RAMUCIRUMAB
     Indication: GASTROINTESTINAL CARCINOMA
     Dosage: UNK UNK, CYCLIC
     Route: 065

REACTIONS (6)
  - Haemorrhage [Fatal]
  - Anal haemorrhage [Fatal]
  - Platelet count decreased [Fatal]
  - Epistaxis [Fatal]
  - Dyspnoea [Fatal]
  - Haematemesis [Fatal]
